FAERS Safety Report 11840721 (Version 1)
Quarter: 2015Q4

REPORT INFORMATION
  Report Type: Spontaneous
  Country: US (occurrence: US)
  Receive Date: 20151216
  Receipt Date: 20151216
  Transmission Date: 20160305
  Serious: No
  Sender: FDA-Public Use
  Company Number: US-ACTELION PHARMACEUTICALS US, INC.-A-US2014-100053

PATIENT
  Age: 53 Year
  Sex: Female

DRUGS (2)
  1. VELETRI [Suspect]
     Active Substance: EPOPROSTENOL
     Indication: PULMONARY ARTERIAL HYPERTENSION
     Dosage: 13 NG/KG, PER MIN
     Route: 042
     Dates: start: 20131022
  2. VELETRI [Suspect]
     Active Substance: EPOPROSTENOL
     Dosage: 17 NG/KG, UNK
     Route: 042
     Dates: start: 20140125

REACTIONS (6)
  - Dermatitis contact [Unknown]
  - Catheter site pruritus [Unknown]
  - Catheter site swelling [Unknown]
  - Catheter site pain [Unknown]
  - Catheter site erythema [Unknown]
  - Asthma [Unknown]
